FAERS Safety Report 7336118-3 (Version None)
Quarter: 2011Q1

REPORT INFORMATION
  Report Type: 
  Country: None (occurrence: None)
  Receive Date: 20110307
  Receipt Date: 20110302
  Transmission Date: 20110831
  Serious: Yes (Other)
  Sender: FDA-Public Use
  Company Number: US-ABBOTT-11P-163-0708839-00

PATIENT
  Age: 76 Year
  Sex: Male

DRUGS (5)
  1. SODIUM FERRIC GLUCONATE [Suspect]
     Route: 042
  2. SODIUM FERRIC GLUCONATE [Suspect]
     Route: 042
  3. SODIUM FERRIC GLUCONATE [Suspect]
     Route: 042
  4. FERROUS SULFATE TAB [Suspect]
     Indication: PRODUCT USED FOR UNKNOWN INDICATION
     Route: 048
  5. SODIUM FERRIC GLUCONATE [Suspect]
     Indication: PRODUCT USED FOR UNKNOWN INDICATION
     Route: 042

REACTIONS (1)
  - YERSINIA INFECTION [None]
